FAERS Safety Report 9205713 (Version 3)
Quarter: 2013Q2

REPORT INFORMATION
  Report Type: Spontaneous
  Country: US (occurrence: US)
  Receive Date: 20130403
  Receipt Date: 20130415
  Transmission Date: 20140414
  Serious: Yes (Other)
  Sender: FDA-Public Use
  Company Number: US-PFIZER INC-2013101837

PATIENT
  Age: 63 Year
  Sex: Female
  Weight: 109 kg

DRUGS (2)
  1. HYDROMORPHONE [Suspect]
     Indication: FRACTURE PAIN
     Dosage: 1 MG, SINGLE
  2. HYDROMORPHONE [Suspect]
     Dosage: 0.5 MG/HOUR

REACTIONS (2)
  - Loss of consciousness [Recovered/Resolved]
  - Respiratory depression [Recovered/Resolved]
